FAERS Safety Report 8698199 (Version 2)
Quarter: 2013Q4

REPORT INFORMATION
  Report Type: Spontaneous
  Country: US (occurrence: US)
  Receive Date: 20120802
  Receipt Date: 20131101
  Transmission Date: 20140711
  Serious: No
  Sender: FDA-Public Use
  Company Number: US-009507513-1207USA010634

PATIENT
  Sex: Female

DRUGS (11)
  1. ZOCOR [Suspect]
     Dosage: 40 MG, QD
     Route: 048
  2. LYRICA [Suspect]
     Dosage: 100 MG, QD
     Route: 048
  3. LYRICA [Suspect]
     Dosage: 100 MG, BID
     Route: 048
  4. FENOFIBRATE [Suspect]
     Dosage: 160 MG, QD
     Route: 048
  5. NEXIUM [Concomitant]
     Dosage: 40 MG, QD
  6. VITAMIN D (UNSPECIFIED) [Concomitant]
  7. TRAMADOL HYDROCHLORIDE [Concomitant]
  8. MECLIZINE [Concomitant]
  9. LISINOPRIL [Concomitant]
     Dosage: 10 MG, QD
  10. NAPROSYN [Concomitant]
     Dosage: 500 MG, QD
  11. COUMADIN [Concomitant]

REACTIONS (4)
  - Drug ineffective [Unknown]
  - Pain [Unknown]
  - Drug tolerance [Unknown]
  - Blood triglycerides increased [Unknown]
